FAERS Safety Report 5340105-4 (Version None)
Quarter: 2007Q2

REPORT INFORMATION
  Report Type: 
  Country: None (occurrence: None)
  Receive Date: 20070525
  Receipt Date: 20070525
  Transmission Date: 20071010
  Serious: Yes (Hospitalization)
  Sender: FDA-Public Use
  Company Number: None

PATIENT
  Age: 82 Year
  Sex: Male

DRUGS (11)
  1. WARFARIN SODIUM [Suspect]
     Indication: ATRIAL FIBRILLATION
     Dosage: 3MG DAILY PO
     Route: 048
  2. ASPIRIN [Suspect]
     Indication: ATRIAL FIBRILLATION
     Dosage: 81MG DAILY PO
     Route: 048
  3. COREG [Concomitant]
  4. ZOCOR [Concomitant]
  5. IMDUR [Concomitant]
  6. PROTONIX [Concomitant]
  7. FLOMAX [Concomitant]
  8. TRAZODONE HCL [Concomitant]
  9. EDECRIN [Concomitant]
  10. PROSCAR [Concomitant]
  11. NTG SL [Concomitant]

REACTIONS (6)
  - ANGINA PECTORIS [None]
  - CHEST PAIN [None]
  - DYSPHAGIA [None]
  - INTERNATIONAL NORMALISED RATIO INCREASED [None]
  - ORAL INTAKE REDUCED [None]
  - UPPER GASTROINTESTINAL HAEMORRHAGE [None]
